FAERS Safety Report 9887457 (Version 2)
Quarter: 2013Q4

REPORT INFORMATION
  Report Type: Spontaneous
  Country: US (occurrence: None)
  Receive Date: 20131223
  Receipt Date: 20131223
  Transmission Date: 20140711
  Serious: No
  Sender: FDA-Public Use
  Company Number: 219011LEO

PATIENT
  Age: 64 Year
  Sex: Female

DRUGS (1)
  1. PICATO (0.015 %, GEL) [Suspect]
     Indication: ACTINIC KERATOSIS
     Dosage: 1 IN 1 D, DERMAL
     Dates: start: 20120911, end: 20120913

REACTIONS (5)
  - Drug ineffective [None]
  - Application site swelling [None]
  - Application site exfoliation [None]
  - Application site pain [None]
  - Off label use [None]
